FAERS Safety Report 6702792-5 (Version None)
Quarter: 2010Q2

REPORT INFORMATION
  Report Type: 
  Country: None (occurrence: None)
  Receive Date: 20100429
  Receipt Date: 20100418
  Transmission Date: 20101027
  Serious: Yes (Life-Threatening, Hospitalization)
  Sender: FDA-Public Use
  Company Number: CA-ELI_LILLY_AND_COMPANY-CA201001004399

PATIENT
  Age: 68 Year
  Sex: Female

DRUGS (2)
  1. FORTEO [Suspect]
     Indication: OSTEOPOROSIS
     Dosage: 20 UG, DAILY (1/D)
     Dates: start: 20091203, end: 20100120
  2. ANALGESICS [Concomitant]
     Indication: RHEUMATOID ARTHRITIS

REACTIONS (7)
  - COUGH [None]
  - FATIGUE [None]
  - HAEMOPTYSIS [None]
  - INFECTION [None]
  - MALAISE [None]
  - PNEUMONIA [None]
  - PYREXIA [None]
